FAERS Safety Report 10220634 (Version 1)
Quarter: 2014Q2

REPORT INFORMATION
  Report Type: Spontaneous
  Country: RO (occurrence: RO)
  Receive Date: 20140606
  Receipt Date: 20140606
  Transmission Date: 20141212
  Serious: Yes (Hospitalization)
  Sender: FDA-Public Use
  Company Number: RO-ORION CORPORATION ORION PHARMA-14_00000875

PATIENT
  Age: 78 Year
  Sex: Female

DRUGS (7)
  1. STALEVO [Suspect]
     Indication: PARKINSON^S DISEASE
     Dosage: STRENGTH: 100 MG/25 MG/200 MG
     Route: 048
     Dates: start: 20140516, end: 201405
  2. STALEVO [Suspect]
     Dosage: STRENGTH: 100 MG/25 MG/200 MG
     Route: 048
     Dates: start: 20140522, end: 20140524
  3. DRIPTANE [Concomitant]
     Indication: BLADDER DYSFUNCTION
     Dosage: STRENGTH: 5 MG
     Route: 048
     Dates: start: 20130715
  4. AMLODIPINE [Concomitant]
     Indication: HYPERTENSION
     Dosage: STRENGTH: 5 MG
     Route: 048
     Dates: start: 20110518
  5. RAMIPRIL [Concomitant]
     Indication: HYPERTENSION
     Dosage: STRENGTH: 5 MG
     Route: 048
     Dates: start: 20091008
  6. MIRAPEXIN [Concomitant]
     Indication: PARKINSON^S DISEASE
     Dosage: STRENGTH: 0.18 MG
     Route: 048
     Dates: start: 20140516
  7. MIRAPEXIN [Concomitant]
     Route: 048

REACTIONS (6)
  - Therapy cessation [Unknown]
  - Vomiting [Recovered/Resolved]
  - Face oedema [Recovered/Resolved]
  - Malaise [Recovered/Resolved]
  - Headache [Recovered/Resolved]
  - Vertigo [Recovered/Resolved]
